FAERS Safety Report 7674292-X (Version None)
Quarter: 2011Q3

REPORT INFORMATION
  Report Type: 
  Country: None (occurrence: None)
  Receive Date: 20110810
  Receipt Date: 20100916
  Transmission Date: 20111222
  Serious: No
  Sender: FDA-Public Use
  Company Number: US-BAUSCH-2010BL005231

PATIENT
  Age: 79 Year
  Sex: Male

DRUGS (5)
  1. CROMOLYN SODIUM [Suspect]
     Route: 045
     Dates: start: 20100914
  2. CROMOLYN SODIUM [Suspect]
     Route: 045
     Dates: start: 20100914
  3. MUCINEX [Concomitant]
     Indication: SINUS CONGESTION
     Route: 048
  4. CROMOLYN SODIUM [Suspect]
     Indication: HEADACHE
     Route: 045
     Dates: start: 20100401, end: 20100401
  5. CROMOLYN SODIUM [Suspect]
     Indication: SINUS CONGESTION
     Route: 045
     Dates: start: 20100401, end: 20100401

REACTIONS (2)
  - CONDITION AGGRAVATED [None]
  - EAR DISCOMFORT [None]
